FAERS Safety Report 5270787-7 (Version None)
Quarter: 2007Q1

REPORT INFORMATION
  Report Type: 
  Country: None (occurrence: None)
  Receive Date: 20070321
  Receipt Date: 20070320
  Transmission Date: 20070707
  Serious: Yes (Other)
  Sender: FDA-Public Use
  Company Number: US-BRISTOL-MYERS SQUIBB COMPANY-13706882

PATIENT
  Age: 47 Year
  Sex: Female

DRUGS (1)
  1. DEFINITY [Suspect]
     Indication: ECHOCARDIOGRAM
     Dosage: 2CC OF DILUTED DEFINITY GIVEN OVER 5-8 SECONDS
     Route: 042
     Dates: start: 20070302, end: 20070302

REACTIONS (6)
  - COMA [None]
  - DIZZINESS [None]
  - ERYTHEMA [None]
  - FEELING ABNORMAL [None]
  - FEELING HOT [None]
  - RESPIRATORY ARREST [None]
